FAERS Safety Report 14495350 (Version 1)
Quarter: 2018Q1

REPORT INFORMATION
  Report Type: Spontaneous
  Country: US (occurrence: US)
  Receive Date: 20180206
  Receipt Date: 20180206
  Transmission Date: 20180509
  Serious: No
  Sender: FDA-Public Use
  Company Number: US-SMITH AND NEPHEW, INC-2017SMT00341

PATIENT
  Age: 46 Year
  Sex: Male
  Weight: 114.29 kg

DRUGS (5)
  1. NOVOLOG [Concomitant]
     Active Substance: INSULIN ASPART
     Dosage: FOR COVERAGE WITH MEALS
  2. SYMBICORT [Concomitant]
     Active Substance: BUDESONIDE\FORMOTEROL FUMARATE DIHYDRATE
  3. LANTUS [Concomitant]
     Active Substance: INSULIN GLARGINE
     Dosage: UNK, 1X/DAY
  4. OXYCODONE [Concomitant]
     Active Substance: OXYCODONE
     Dosage: 10 MG, AS NEEDED
  5. REGRANEX [Suspect]
     Active Substance: BECAPLERMIN
     Indication: WOUND
     Dosage: UNK, 1X/DAY FOR 12 HOURS ON AND 12 HOURS OFF
     Route: 061
     Dates: start: 20170511

REACTIONS (1)
  - Application site pain [Recovered/Resolved]

NARRATIVE: CASE EVENT DATE: 20170511
